FAERS Safety Report 8581092-5 (Version None)
Quarter: 2012Q3

REPORT INFORMATION
  Report Type: 
  Country: None (occurrence: None)
  Receive Date: 20120809
  Receipt Date: 20120730
  Transmission Date: 20120928
  Serious: Yes (Life-Threatening, Hospitalization)
  Sender: FDA-Public Use
  Company Number: GB-MPIJNJ-2012-04307

PATIENT

DRUGS (13)
  1. RITUXIMAB [Suspect]
     Indication: B-CELL LYMPHOMA
     Dosage: 670 MG, UNK
     Route: 065
     Dates: start: 20120511, end: 20120530
  2. VINCRISTINE [Suspect]
     Indication: B-CELL LYMPHOMA
     Dosage: 2 MG, UNK
     Route: 065
     Dates: start: 20120511, end: 20120530
  3. DOXORUBICIN HYDROCHLORIDE [Suspect]
     Indication: B-CELL LYMPHOMA
     Dosage: 90 MG, UNK
     Route: 065
     Dates: start: 20120511, end: 20120530
  4. ACYCLOVIR [Concomitant]
     Indication: ANTIVIRAL PROPHYLAXIS
     Dosage: 400 MG, TID
     Route: 048
  5. ALLOPURINOL [Concomitant]
     Indication: TUMOUR LYSIS SYNDROME
     Dosage: 300 MG, QD
     Route: 048
  6. AMITRIPTYLINE HCL [Concomitant]
     Indication: ANXIETY
     Dosage: 50 MG, QD
     Route: 048
  7. PREDNISOLONE [Suspect]
     Indication: B-CELL LYMPHOMA
     Dosage: 100 MG, UNK
     Route: 065
     Dates: start: 20120511, end: 20120530
  8. OMEPRAZOLE [Concomitant]
     Dosage: 40 MG, QD
     Route: 048
  9. AMITRIPTYLINE HCL [Concomitant]
     Dosage: 25 MG, UNK
     Route: 048
  10. METOCLOPRAMIDE [Concomitant]
     Dosage: 20 MG, UNK
     Route: 048
  11. CYCLOPHOSPHAMIDE [Suspect]
     Indication: B-CELL LYMPHOMA
     Dosage: 1340 MG, UNK
     Route: 065
     Dates: start: 20120511, end: 20120530
  12. VELCADE [Suspect]
     Indication: B-CELL LYMPHOMA
     Dosage: 2.3 MG, UNK
     Route: 065
     Dates: start: 20120530, end: 20120608
  13. METOCLOPRAMIDE [Concomitant]
     Dosage: 10 MG, UNK
     Route: 048

REACTIONS (4)
  - VOMITING [None]
  - SMALL INTESTINAL OBSTRUCTION [None]
  - NAUSEA [None]
  - ABDOMINAL PAIN UPPER [None]
